FAERS Safety Report 16100103 (Version 1)
Quarter: 2019Q1

REPORT INFORMATION
  Report Type: Spontaneous
  Country: JP (occurrence: JP)
  Receive Date: 20190321
  Receipt Date: 20190321
  Transmission Date: 20190418
  Serious: Yes (Other)
  Sender: FDA-Public Use
  Company Number: JP-ROCHE-2286280

PATIENT

DRUGS (2)
  1. DENOSINE (JAPAN) [Suspect]
     Active Substance: GANCICLOVIR
     Indication: PRODUCT USED FOR UNKNOWN INDICATION
     Route: 041
  2. DENOSINE (JAPAN) [Suspect]
     Active Substance: GANCICLOVIR
     Dosage: DOSE REDUCED
     Route: 041
     Dates: start: 20190228

REACTIONS (2)
  - Drug ineffective [Unknown]
  - Cytomegalovirus infection [Unknown]
